FAERS Safety Report 25039539 (Version 1)
Quarter: 2025Q1

REPORT INFORMATION
  Report Type: Other
  Country: GB (occurrence: GB)
  Receive Date: 20250305
  Receipt Date: 20250305
  Transmission Date: 20250408
  Serious: Yes (Other)
  Sender: GLENMARK
  Company Number: None

PATIENT
  Age: 77 Year
  Sex: Male
  Weight: 62 kg

DRUGS (2)
  1. ROPINIROLE HYDROCHLORIDE [Suspect]
     Active Substance: ROPINIROLE HYDROCHLORIDE
     Indication: Product used for unknown indication
     Route: 065
     Dates: start: 20210501
  2. ROPINIROLE HYDROCHLORIDE [Suspect]
     Active Substance: ROPINIROLE HYDROCHLORIDE
     Dosage: 4 MILLIGRAM, QD (MAXIMUM DOSE OF 4 MG PER DAY)
     Route: 065
     Dates: start: 20210501

REACTIONS (3)
  - Medication error [Unknown]
  - Wrong drug [Unknown]
  - Restless leg augmentation syndrome [Not Recovered/Not Resolved]

NARRATIVE: CASE EVENT DATE: 20230301
